FAERS Safety Report 9427496 (Version 5)
Quarter: 2014Q1

REPORT INFORMATION
  Report Type: Report from Study
  Country: CA (occurrence: CA)
  Receive Date: 20130730
  Receipt Date: 20140115
  Transmission Date: 20141002
  Serious: Yes (Death, Other)
  Sender: FDA-Public Use
  Company Number: CA-BAYER-2013-088843

PATIENT
  Age: 70 Year
  Sex: Female

DRUGS (3)
  1. STIVARGA [Suspect]
     Indication: COLORECTAL CANCER METASTATIC
     Dosage: DAILY DOSE 160 MG
     Route: 048
     Dates: start: 20130715, end: 201307
  2. STIVARGA [Suspect]
     Indication: COLORECTAL CANCER METASTATIC
     Dosage: 120 MG, QD
     Route: 048
     Dates: start: 201307, end: 20130721
  3. STIVARGA [Suspect]
     Indication: COLORECTAL CANCER METASTATIC
     Dosage: 120 MG, QD
     Route: 048
     Dates: start: 20130715, end: 20130917

REACTIONS (10)
  - Skin wound [None]
  - Fatigue [None]
  - Constipation [None]
  - Decreased appetite [None]
  - Dry mouth [None]
  - Pain in extremity [None]
  - Nausea [None]
  - Blood phosphorus decreased [None]
  - Neoplasm [None]
  - Death [Fatal]
